FAERS Safety Report 8679642 (Version 2)
Quarter: 2012Q4

REPORT INFORMATION
  Report Type: 
  Country: AR (occurrence: AR)
  Receive Date: 20120724
  Receipt Date: 20120911
  Transmission Date: 20130627
  Serious: Yes (Hospitalization, Other)
  Sender: FDA-Public Use
  Company Number: AR-SANOFI-AVENTIS-2012SA051130

PATIENT
  Age: 10 Year
  Sex: Female

DRUGS (3)
  1. RIFAMPICIN [Suspect]
     Indication: TUBERCULOSIS
     Route: 065
  2. PYRAZINAMIDE [Suspect]
     Indication: TUBERCULOSIS
     Route: 065
  3. ISONIAZID [Suspect]
     Indication: TUBERCULOSIS
     Route: 065

REACTIONS (15)
  - Acute hepatic failure [Recovered/Resolved]
  - Vomiting [Recovered/Resolved]
  - Pyrexia [Recovered/Resolved]
  - Asthenia [Recovered/Resolved]
  - Decreased appetite [Recovered/Resolved]
  - Jaundice [Recovered/Resolved]
  - Aspartate aminotransferase increased [Recovered/Resolved]
  - Alanine aminotransferase increased [Recovered/Resolved]
  - Blood bilirubin increased [Recovered/Resolved]
  - Coagulopathy [Recovered/Resolved]
  - Hepatic necrosis [Recovered/Resolved]
  - Encephalopathy [Unknown]
  - Dysarthria [Unknown]
  - Status epilepticus [Unknown]
  - Grand mal convulsion [Recovered/Resolved]
